FAERS Safety Report 7282089-8 (Version None)
Quarter: 2011Q1

REPORT INFORMATION
  Report Type: 
  Country: None (occurrence: None)
  Receive Date: 20110208
  Receipt Date: 20110202
  Transmission Date: 20110831
  Serious: Yes (Other)
  Sender: FDA-Public Use
  Company Number: US-B.I. PHARMACEUTICALS,INC./RIDGEFIELD-2010-BP-14077BP

PATIENT
  Age: 26 Year
  Sex: Female

DRUGS (3)
  1. PREZISTA [Concomitant]
     Indication: ANTIVIRAL TREATMENT
     Dosage: 800 MG
     Route: 048
     Dates: start: 20100414
  2. APTIVUS/RITONAVIR CAPSULES [Suspect]
     Indication: HIV INFECTION
     Route: 048
     Dates: start: 20100404
  3. NORVIR [Concomitant]
     Indication: ANTIVIRAL TREATMENT
     Dosage: 100 MG
     Route: 048
     Dates: start: 20100414

REACTIONS (1)
  - ABORTION SPONTANEOUS [None]
